FAERS Safety Report 12215831 (Version 1)
Quarter: 2016Q1

REPORT INFORMATION
  Report Type: Spontaneous
  Country: US (occurrence: US)
  Receive Date: 20160328
  Receipt Date: 20160328
  Transmission Date: 20160526
  Serious: Yes (Other)
  Sender: FDA-Public Use
  Company Number: US-WATSON-2015-17899

PATIENT
  Age: 81 Year
  Sex: Female

DRUGS (3)
  1. CALCIUM [Concomitant]
     Active Substance: CALCIUM
     Indication: BONE DENSITY ABNORMAL
     Dosage: UNK, UNKNOWN
     Route: 048
     Dates: start: 201504
  2. VITAMIN D [Concomitant]
     Active Substance: CHOLECALCIFEROL
     Indication: BONE DENSITY ABNORMAL
     Dosage: UNK, UNKNOWN
     Route: 048
     Dates: start: 201504
  3. ALENDRONATE SODIUM (WATSON LABORATORIES) [Suspect]
     Active Substance: ALENDRONATE SODIUM
     Indication: BONE DENSITY DECREASED
     Dosage: 70 MG, 1/WEEK
     Route: 048
     Dates: start: 201504, end: 20150712

REACTIONS (3)
  - Feeling abnormal [Not Recovered/Not Resolved]
  - Loss of consciousness [Recovered/Resolved]
  - Presyncope [Recovered/Resolved]

NARRATIVE: CASE EVENT DATE: 201504
